FAERS Safety Report 9900345 (Version 3)
Quarter: 2014Q2

REPORT INFORMATION
  Report Type: Spontaneous
  Country: US (occurrence: US)
  Receive Date: 20140216
  Receipt Date: 20140505
  Transmission Date: 20141212
  Serious: Yes (Hospitalization, Other)
  Sender: FDA-Public Use
  Company Number: US-CELGENEUS-163-21880-14021464

PATIENT
  Age: 62 Year
  Sex: Female
  Weight: 67 kg

DRUGS (61)
  1. REVLIMID [Suspect]
     Indication: PLASMA CELL MYELOMA
     Route: 048
     Dates: start: 20120322
  2. ELOTUZUMAB [Suspect]
     Indication: PLASMA CELL MYELOMA
     Route: 041
     Dates: start: 20120322
  3. DEXAMETHASONE [Suspect]
     Indication: PLASMA CELL MYELOMA
     Route: 048
     Dates: start: 20120322
  4. DEXAMETHASONE [Suspect]
     Route: 065
     Dates: start: 20120604, end: 20120614
  5. DEXAMETHASONE [Suspect]
     Route: 065
     Dates: start: 20140406, end: 20140407
  6. IV DEXAMETHASONE [Suspect]
     Indication: PLASMA CELL MYELOMA
     Route: 041
     Dates: start: 20120322
  7. ACYCLOVIR [Concomitant]
     Indication: PRODUCT USED FOR UNKNOWN INDICATION
     Route: 065
     Dates: start: 20090218
  8. ZOLPIDEM [Concomitant]
     Indication: PRODUCT USED FOR UNKNOWN INDICATION
     Route: 065
     Dates: start: 20120316
  9. ASPIRINE [Concomitant]
     Indication: PRODUCT USED FOR UNKNOWN INDICATION
     Route: 065
     Dates: start: 20120322
  10. QUININE SULFATE [Concomitant]
     Indication: ADVERSE EVENT
     Route: 065
     Dates: start: 20120406, end: 20130328
  11. MAGNESIUM PLUS PROTEIN MULTIVITAMIN [Concomitant]
     Indication: PRODUCT USED FOR UNKNOWN INDICATION
     Route: 065
     Dates: start: 20120405
  12. TEMAZEPAM [Concomitant]
     Indication: ADVERSE EVENT
     Route: 065
     Dates: start: 20120712
  13. PROCHLORPERAZINE [Concomitant]
     Indication: ADVERSE EVENT
     Route: 065
     Dates: start: 20120816, end: 20130328
  14. NEULASTA [Concomitant]
     Indication: PRODUCT USED FOR UNKNOWN INDICATION
     Route: 065
     Dates: start: 20121005
  15. MINOXIDIL [Concomitant]
     Indication: ADVERSE EVENT
     Route: 065
     Dates: start: 20130204
  16. TYLENOL [Concomitant]
     Indication: ADVERSE EVENT
     Route: 065
     Dates: start: 20130519
  17. TYLENOL [Concomitant]
     Dosage: 2000 MILLIGRAM
     Route: 048
     Dates: start: 20140115, end: 20140201
  18. TYLENOL [Concomitant]
     Route: 065
     Dates: start: 20140202, end: 20140209
  19. SENNA [Concomitant]
     Indication: ADVERSE EVENT
     Route: 065
     Dates: start: 20130801
  20. MIRALAX [Concomitant]
     Indication: ADVERSE EVENT
     Route: 065
     Dates: start: 20130801
  21. OXYCODONE [Concomitant]
     Indication: ADVERSE EVENT
     Route: 065
     Dates: start: 20131028
  22. CIPROFLOXACIN [Concomitant]
     Indication: ADVERSE EVENT
     Dosage: 1000 MILLIGRAM
     Route: 065
     Dates: start: 20140122, end: 20140202
  23. AMITRIPTYLINE/BACLOFEN [Concomitant]
     Indication: ADVERSE EVENT
     Route: 062
     Dates: start: 20131028, end: 20140116
  24. AZITHROMYCIN [Concomitant]
     Indication: ADVERSE EVENT
     Route: 065
     Dates: start: 20140116, end: 20140122
  25. AZITHROMYCIN [Concomitant]
     Route: 048
     Dates: start: 20140202, end: 20140202
  26. NYQUIL [Concomitant]
     Indication: ADVERSE EVENT
     Route: 065
     Dates: start: 20131225, end: 20140116
  27. NYQUIL [Concomitant]
     Route: 065
     Dates: start: 20140130, end: 20140202
  28. DIPHTHERIA, ACELLULAR/TETANUS VACCINE [Concomitant]
     Indication: PRODUCT USED FOR UNKNOWN INDICATION
     Route: 065
     Dates: start: 20140122, end: 20140122
  29. HAEMOPHILUS B CONJUGATE VACCINE [Concomitant]
     Indication: PRODUCT USED FOR UNKNOWN INDICATION
     Route: 065
     Dates: start: 20140122, end: 20140122
  30. HEPATITIS B VACCINE [Concomitant]
     Indication: PRODUCT USED FOR UNKNOWN INDICATION
     Route: 065
     Dates: start: 20140122, end: 20140122
  31. PNEUMOCOCCAL 13-VALENT CONJUGATE VACCINE [Concomitant]
     Indication: PRODUCT USED FOR UNKNOWN INDICATION
     Route: 065
     Dates: start: 20140122, end: 20140122
  32. POLIO VIRUS VACCINE [Concomitant]
     Indication: PRODUCT USED FOR UNKNOWN INDICATION
     Route: 065
     Dates: start: 20140122, end: 20140122
  33. LORATADINE [Concomitant]
     Indication: ADVERSE EVENT
     Route: 065
     Dates: start: 20140130, end: 20140202
  34. OREGANO COUGH SYRUP [Concomitant]
     Indication: ADVERSE EVENT
     Route: 065
     Dates: start: 20140130, end: 20140202
  35. OSELTAMIVIR [Concomitant]
     Indication: ADVERSE EVENT
     Route: 041
     Dates: start: 20140202, end: 20140202
  36. VANCOMYCIN [Concomitant]
     Indication: ADVERSE EVENT
     Route: 041
     Dates: start: 20140202, end: 20140202
  37. VANCOMYCIN [Concomitant]
     Route: 041
     Dates: start: 20140203, end: 20140204
  38. VANCOMYCIN [Concomitant]
     Route: 041
     Dates: start: 20140204, end: 20140205
  39. ZOSYN [Concomitant]
     Indication: ADVERSE EVENT
     Route: 041
     Dates: start: 20140202, end: 20140202
  40. ZOSYN [Concomitant]
     Route: 041
     Dates: start: 20140203, end: 20140207
  41. ZOSYN [Concomitant]
     Route: 041
     Dates: start: 20140204, end: 20140205
  42. OXYGEN [Concomitant]
     Indication: ADVERSE EVENT
     Route: 065
     Dates: start: 20140202, end: 20140209
  43. ROBITUSSIN AC [Concomitant]
     Indication: ADVERSE EVENT
     Route: 065
     Dates: start: 20140202, end: 20140202
  44. CEPACOL [Concomitant]
     Indication: ADVERSE EVENT
     Route: 065
     Dates: start: 20140203
  45. CEPASTAT LOZENGES [Concomitant]
     Indication: ADVERSE EVENT
     Route: 065
     Dates: start: 20140202, end: 20140202
  46. DUONEB [Concomitant]
     Indication: ADVERSE EVENT
     Route: 065
     Dates: start: 20140203, end: 20140209
  47. CALCIUM GLUCONATE [Concomitant]
     Indication: ADVERSE EVENT
     Route: 065
     Dates: start: 20140205, end: 20140205
  48. OMNIPAQUE [Concomitant]
     Indication: PRODUCT USED FOR UNKNOWN INDICATION
     Route: 065
     Dates: start: 20140202, end: 20140202
  49. MAGNESIUM SULFATE [Concomitant]
     Indication: ADVERSE EVENT
     Route: 065
     Dates: start: 20140204, end: 20140206
  50. NACL [Concomitant]
     Indication: ADVERSE EVENT
     Dosage: 0.9%
     Dates: start: 20140202, end: 20140202
  51. NEUTRA-PHOS [Concomitant]
     Indication: ADVERSE EVENT
     Route: 065
     Dates: start: 20140206, end: 20140206
  52. POTASSIUM CHLORIDE [Concomitant]
     Indication: ADVERSE EVENT
     Route: 065
     Dates: start: 20140202, end: 20140202
  53. POTASSIUM CHLORIDE [Concomitant]
     Route: 041
     Dates: start: 20140205, end: 20140206
  54. PANTOPRAZOLE [Concomitant]
     Indication: ADVERSE EVENT
     Route: 065
     Dates: start: 20140203, end: 20140209
  55. PANTOPRAZOLE [Concomitant]
     Route: 065
     Dates: start: 20140220
  56. ENOXAPARIN [Concomitant]
     Indication: PRODUCT USED FOR UNKNOWN INDICATION
     Route: 065
     Dates: start: 20140204, end: 20140209
  57. ESOMEPRAZOLE [Concomitant]
     Indication: ADVERSE EVENT
     Route: 065
     Dates: start: 20140218, end: 20140220
  58. RANITIDINE [Concomitant]
     Indication: ADVERSE EVENT
     Route: 065
     Dates: start: 20140218, end: 20140220
  59. MAALOX [Concomitant]
     Indication: ADVERSE EVENT
     Route: 065
     Dates: start: 20140209, end: 20140217
  60. MAALOX [Concomitant]
     Route: 065
     Dates: start: 20140218
  61. FLU VACCINE [Concomitant]
     Indication: PRODUCT USED FOR UNKNOWN INDICATION
     Route: 065
     Dates: start: 20140220, end: 20140220

REACTIONS (1)
  - Acute respiratory failure [Recovered/Resolved]
